FAERS Safety Report 7525055-7 (Version None)
Quarter: 2011Q2

REPORT INFORMATION
  Report Type: 
  Country: None (occurrence: None)
  Receive Date: 20110606
  Receipt Date: 20110523
  Transmission Date: 20111010
  Serious: Yes (Other)
  Sender: FDA-Public Use
  Company Number: US-ELI_LILLY_AND_COMPANY-US201104002158

PATIENT
  Sex: Female

DRUGS (2)
  1. FORTEO [Suspect]
     Dosage: 20 UG, QD
     Route: 065
  2. FORTEO [Suspect]
     Indication: OSTEOPOROSIS
     Dosage: 20 UG, QD
     Dates: start: 20110328

REACTIONS (7)
  - SKIN INJURY [None]
  - CONSTIPATION [None]
  - BREAST CANCER [None]
  - ASTHENIA [None]
  - NAUSEA [None]
  - DIARRHOEA [None]
  - HYPOTENSION [None]
